FAERS Safety Report 22879642 (Version 7)
Quarter: 2023Q4

REPORT INFORMATION
  Report Type: Report from Study
  Country: US (occurrence: US)
  Receive Date: 20230829
  Receipt Date: 20231218
  Transmission Date: 20240109
  Serious: No
  Sender: FDA-Public Use
  Company Number: US-002147023-NVSC2023US187115

PATIENT
  Sex: Female

DRUGS (1)
  1. KESIMPTA [Suspect]
     Active Substance: OFATUMUMAB
     Indication: Product used for unknown indication
     Dosage: 20 MG, QMO
     Route: 065
     Dates: start: 20231115, end: 20231115

REACTIONS (10)
  - Feeling abnormal [Unknown]
  - Somnolence [Unknown]
  - Fear of injection [Unknown]
  - Visual impairment [Unknown]
  - Headache [Unknown]
  - Body temperature increased [Unknown]
  - Chills [Unknown]
  - Nasopharyngitis [Unknown]
  - Cough [Unknown]
  - Vision blurred [Unknown]
